FAERS Safety Report 20043215 (Version 3)
Quarter: 2022Q2

REPORT INFORMATION
  Report Type: Report from Study
  Country: US (occurrence: None)
  Receive Date: 20211108
  Receipt Date: 20220616
  Transmission Date: 20220721
  Serious: No
  Sender: FDA-Public Use
  Company Number: US-ROCHE-2947109

PATIENT
  Age: 53 Year
  Weight: 136.5 kg

DRUGS (19)
  1. BEVACIZUMAB [Suspect]
     Active Substance: BEVACIZUMAB
     Indication: Colorectal cancer metastatic
     Dosage: AS PER PROTOCOL?OVER 30-90 MINUTES ON DAY 1
     Route: 042
  2. CAPECITABINE [Suspect]
     Active Substance: CAPECITABINE
     Indication: Colorectal cancer metastatic
     Dosage: ON DAYS 1-14. COURSES REPEAT EVERY 21 DAYS.?DOSE: 850 OR 1000 MG/M^2
     Route: 048
     Dates: start: 20150615, end: 20150923
  3. ATEZOLIZUMAB [Suspect]
     Active Substance: ATEZOLIZUMAB
     Indication: Colorectal cancer metastatic
     Dosage: AS PER PROTOCOL?OVER 30-60 MINUTES ON DAY 1
     Route: 041
  4. OXYBUTYNIN [Concomitant]
     Active Substance: OXYBUTYNIN
  5. AMLODIPINE [Concomitant]
     Active Substance: AMLODIPINE BESYLATE
  6. TRIAMTERENE [Concomitant]
     Active Substance: TRIAMTERENE
  7. POTASSIUM ACETATE [Concomitant]
     Active Substance: POTASSIUM ACETATE
  8. NORCO [Concomitant]
     Active Substance: ACETAMINOPHEN\HYDROCODONE BITARTRATE
  9. IBUPROFEN [Concomitant]
     Active Substance: IBUPROFEN
  10. COMPAZINE [Concomitant]
     Active Substance: PROCHLORPERAZINE MALEATE
  11. RIVAROXABAN [Concomitant]
     Active Substance: RIVAROXABAN
  12. LOVENOX [Concomitant]
     Active Substance: ENOXAPARIN SODIUM
  13. LOMOTIL [Concomitant]
     Active Substance: ATROPINE SULFATE\DIPHENOXYLATE HYDROCHLORIDE
  14. ACYCLOVIR [Concomitant]
     Active Substance: ACYCLOVIR
  15. CIPRO [Concomitant]
     Active Substance: CIPROFLOXACIN HYDROCHLORIDE
  16. LORATADINE [Concomitant]
     Active Substance: LORATADINE
  17. BACTRIM [Concomitant]
     Active Substance: SULFAMETHOXAZOLE\TRIMETHOPRIM
  18. BENADRYL [Concomitant]
     Active Substance: DIPHENHYDRAMINE HYDROCHLORIDE
  19. NYSTATIN [Concomitant]
     Active Substance: NYSTATIN

REACTIONS (2)
  - Embolism [Recovered/Resolved]
  - Fatigue [Recovered/Resolved]

NARRATIVE: CASE EVENT DATE: 20180331
